FAERS Safety Report 8056139-5 (Version None)
Quarter: 2012Q1

REPORT INFORMATION
  Report Type: 
  Country: None (occurrence: None)
  Receive Date: 20120119
  Receipt Date: 20120113
  Transmission Date: 20120608
  Serious: No
  Sender: FDA-Public Use
  Company Number: US-PFIZER INC-2012006867

PATIENT
  Sex: Female
  Weight: 58.957 kg

DRUGS (5)
  1. POTASSIUM PENICILLIN G [Suspect]
     Dosage: UNK
  2. CAFFEINE [Concomitant]
     Dosage: UNK
  3. GINSENG [Concomitant]
     Dosage: UNK
  4. GUARANA [Concomitant]
     Dosage: UNK
  5. VITAMIN B COMPLEX CAP [Concomitant]
     Dosage: UNK

REACTIONS (1)
  - HYPERSENSITIVITY [None]
